FAERS Safety Report 12305555 (Version 2)
Quarter: 2016Q2

REPORT INFORMATION
  Report Type: Spontaneous
  Country: US (occurrence: US)
  Receive Date: 20160426
  Receipt Date: 20160513
  Transmission Date: 20160815
  Serious: Yes (Hospitalization, Other)
  Sender: FDA-Public Use
  Company Number: US-SUNOVION-2016SUN000990

PATIENT
  Age: 33 Year
  Sex: Male

DRUGS (4)
  1. LATUDA [Suspect]
     Active Substance: LURASIDONE HYDROCHLORIDE
     Indication: SCHIZOPHRENIA
     Dosage: 160 MG, HS
     Route: 048
     Dates: start: 2013
  2. NORVASC [Concomitant]
     Active Substance: AMLODIPINE BESYLATE
     Indication: HYPERTENSION
     Dosage: 5 MG, QD
     Route: 048
  3. GEODON [Concomitant]
     Active Substance: ZIPRASIDONE HYDROCHLORIDE\ZIPRASIDONE MESYLATE
     Dosage: UNK
  4. LATUDA [Suspect]
     Active Substance: LURASIDONE HYDROCHLORIDE
     Dosage: 160MG, HS
     Route: 048

REACTIONS (19)
  - Emotional disorder [Unknown]
  - Swelling [Unknown]
  - Anger [Unknown]
  - Joint swelling [Unknown]
  - Skin disorder [Not Recovered/Not Resolved]
  - Lip swelling [Unknown]
  - Dehydration [Unknown]
  - Seizure [Unknown]
  - Genital abscess [Not Recovered/Not Resolved]
  - Infection [Unknown]
  - Epistaxis [Recovered/Resolved]
  - Peripheral swelling [Unknown]
  - Electrolyte depletion [Unknown]
  - Genital pain [Not Recovered/Not Resolved]
  - Nicotine dependence [Unknown]
  - Cough [Not Recovered/Not Resolved]
  - White blood cell count decreased [Unknown]
  - Hallucination, auditory [Unknown]
  - Hypertension [Not Recovered/Not Resolved]

NARRATIVE: CASE EVENT DATE: 2013
